FAERS Safety Report 7276113-6 (Version None)
Quarter: 2011Q1

REPORT INFORMATION
  Report Type: 
  Country: None (occurrence: None)
  Receive Date: 20110204
  Receipt Date: 20110128
  Transmission Date: 20110831
  Serious: Yes (Death, Hospitalization, Other)
  Sender: FDA-Public Use
  Company Number: US-CELGENEUS-163-21880-10112227

PATIENT
  Sex: Male

DRUGS (3)
  1. REVLIMID [Suspect]
     Indication: MULTIPLE MYELOMA
     Route: 048
     Dates: start: 20100804
  2. REVLIMID [Suspect]
     Route: 048
     Dates: start: 20100901, end: 20100928
  3. REVLIMID [Suspect]
     Route: 048
     Dates: start: 20100909

REACTIONS (4)
  - DIFFUSE LARGE B-CELL LYMPHOMA [None]
  - NEUTROPENIA [None]
  - PANCYTOPENIA [None]
  - SEPTIC SHOCK [None]
